FAERS Safety Report 7509520-4 (Version None)
Quarter: 2011Q2

REPORT INFORMATION
  Report Type: 
  Country: None (occurrence: None)
  Receive Date: 20110527
  Receipt Date: 20110517
  Transmission Date: 20111010
  Serious: Yes (Hospitalization)
  Sender: FDA-Public Use
  Company Number: US-KINGPHARMUSA00001-K201100616

PATIENT
  Age: 73 Year
  Sex: Male
  Weight: 109.75 kg

DRUGS (21)
  1. EMBEDA [Suspect]
     Indication: NECK PAIN
     Dosage: 60 MG, BID
     Route: 048
     Dates: start: 20101001, end: 20110101
  2. VITAMIN D [Concomitant]
  3. CENTRUM SILVER [Concomitant]
  4. POTASSIUM CHLORIDE [Concomitant]
  5. RISPERDAL [Concomitant]
  6. METOLAZONE [Concomitant]
  7. GABAPENTIN [Concomitant]
  8. SINEMET [Concomitant]
  9. LORAZEPAM [Concomitant]
  10. LIPITOR [Concomitant]
  11. PROSCAR [Concomitant]
  12. SYNTHROID [Concomitant]
  13. FUROSEMIDE [Concomitant]
  14. PERCOCET [Concomitant]
  15. FOLIC ACID [Concomitant]
  16. RESTORIL [Concomitant]
  17. JANUVIA [Concomitant]
  18. EMBEDA [Suspect]
     Indication: BACK PAIN
  19. EMBEDA [Suspect]
     Indication: CHEST PAIN
  20. FLOMAX [Concomitant]
  21. ASPIRIN [Concomitant]

REACTIONS (17)
  - CHEST PAIN [None]
  - PAIN [None]
  - PNEUMONIA [None]
  - ERYTHEMA [None]
  - GENERAL PHYSICAL HEALTH DETERIORATION [None]
  - MEMORY IMPAIRMENT [None]
  - ASTHENIA [None]
  - DYSPHONIA [None]
  - BLISTER [None]
  - INSOMNIA [None]
  - BRONCHITIS [None]
  - OEDEMA [None]
  - GAIT DISTURBANCE [None]
  - ANXIETY [None]
  - ACTIVITIES OF DAILY LIVING IMPAIRED [None]
  - CHANGE IN SUSTAINED ATTENTION [None]
  - BLOOD GLUCOSE INCREASED [None]
